FAERS Safety Report 15650072 (Version 1)
Quarter: 2018Q4

REPORT INFORMATION
  Report Type: Spontaneous
  Country: US (occurrence: US)
  Receive Date: 20181123
  Receipt Date: 20181123
  Transmission Date: 20190205
  Serious: No
  Sender: FDA-Public Use
  Company Number: US-SHIRE-US201845256

PATIENT
  Sex: Female
  Weight: 63.49 kg

DRUGS (1)
  1. CARBATROL [Suspect]
     Active Substance: CARBAMAZEPINE
     Indication: TRIGEMINAL NEURALGIA
     Dosage: 200 MG, 3X/DAY:TID
     Route: 065
     Dates: start: 2003

REACTIONS (1)
  - Pain [Unknown]
